FAERS Safety Report 4439504-4 (Version None)
Quarter: 2004Q3

REPORT INFORMATION
  Report Type: 
  Country: None (occurrence: None)
  Receive Date: 20040830
  Receipt Date: 20040817
  Transmission Date: 20050211
  Serious: Yes (Other)
  Sender: FDA-Public Use
  Company Number: 002-1343-M0200004

PATIENT
  Age: 49 Year
  Sex: Male

DRUGS (11)
  1. VIRACEPT [Suspect]
     Indication: ILL-DEFINED DISORDER
     Dosage: 2500 MG (BID), ORAL
     Route: 048
  2. SAQUINAVIR [Suspect]
     Indication: ILL-DEFINED DISORDER
     Dosage: 2000 MG (BID), INTRAMUSCULAR
     Route: 030
  3. LAMIVUDINE (LAMIVUDINE) [Concomitant]
  4. STAVUDINE (STAVUDINE) [Concomitant]
  5. DIDANOSINE [Concomitant]
  6. FOLIC ACID [Concomitant]
  7. HYDROXYCARBAMIDE (HYDROXYCARBAMIDE) [Concomitant]
  8. LIPITOR [Concomitant]
  9. RANITIDINE HYDROCHLORIDE [Concomitant]
  10. ACYCLOVIR [Concomitant]
  11. BACTRIM [Concomitant]

REACTIONS (3)
  - CACHEXIA [None]
  - DIARRHOEA [None]
  - WEIGHT DECREASED [None]
